FAERS Safety Report 5506520-0 (Version None)
Quarter: 2007Q4

REPORT INFORMATION
  Report Type: 
  Country: None (occurrence: None)
  Receive Date: 20071105
  Receipt Date: 20071029
  Transmission Date: 20080405
  Serious: Yes (Other)
  Sender: FDA-Public Use
  Company Number: A0691309A

PATIENT
  Sex: Female

DRUGS (1)
  1. PAXIL CR [Suspect]
     Indication: DRUG USE FOR UNKNOWN INDICATION
     Route: 048
     Dates: end: 20071001

REACTIONS (6)
  - ADVERSE DRUG REACTION [None]
  - DIZZINESS [None]
  - EATING DISORDER [None]
  - GASTRIC DISORDER [None]
  - INFERTILITY [None]
  - WITHDRAWAL SYNDROME [None]
